FAERS Safety Report 8033570-5 (Version None)
Quarter: 2012Q1

REPORT INFORMATION
  Report Type: 
  Country: None (occurrence: None)
  Receive Date: 20120110
  Receipt Date: 20120103
  Transmission Date: 20120608
  Serious: Yes (Other)
  Sender: FDA-Public Use
  Company Number: US-PFIZER INC-2012003554

PATIENT
  Age: 46 Year
  Sex: Female

DRUGS (4)
  1. QUETIAPINE FUMARATE [Interacting]
     Dosage: 800 MG, DAILY
  2. LOVASTATIN [Interacting]
     Dosage: 20 MG, UNK
  3. SERTRALINE HYDROCHLORIDE [Suspect]
     Dosage: 100 MG, DAILY
  4. LOVASTATIN [Interacting]
     Dosage: 10 MG, DAILY

REACTIONS (2)
  - ELECTROCARDIOGRAM QT PROLONGED [None]
  - DRUG INTERACTION [None]
